FAERS Safety Report 9334652 (Version 2)
Quarter: 2014Q1

REPORT INFORMATION
  Report Type: Spontaneous
  Country: US (occurrence: US)
  Receive Date: 20130606
  Receipt Date: 20140228
  Transmission Date: 20141002
  Serious: Yes (Other)
  Sender: FDA-Public Use
  Company Number: US-AMGEN-USASP2013023897

PATIENT
  Age: 87 Year
  Sex: Female

DRUGS (12)
  1. PROLIA [Suspect]
     Indication: OSTEOPOROSIS POSTMENOPAUSAL
     Dosage: 60 MG, UNK
     Route: 065
     Dates: start: 20130305
  2. NIZATIDINE [Concomitant]
     Dosage: 300 MG, BID
  3. SUCRALFATE [Concomitant]
     Dosage: UNK UNK, QHS
  4. COENZYME A [Concomitant]
     Dosage: 100 MG, UNK
  5. MULTIVITAMIN                       /00097801/ [Concomitant]
  6. LOSARTAN [Concomitant]
     Dosage: UNK UNK, QD
  7. PROBIOTIC                          /06395501/ [Concomitant]
  8. FIBER [Concomitant]
     Dosage: UNK UNK, QHS
  9. MIRALAX                            /00754501/ [Concomitant]
     Dosage: UNK UNK, AS NECESSARY
  10. ESTRACE [Concomitant]
     Dosage: UNK UNK, 2 TIMES/WK
  11. SIMVASTATIN [Concomitant]
     Dosage: 10 MG, QD
  12. COQ10                              /00517201/ [Concomitant]

REACTIONS (13)
  - Peripheral artery stenosis [Unknown]
  - Peripheral vascular disorder [Unknown]
  - Gastrooesophageal reflux disease [Unknown]
  - Night sweats [Unknown]
  - Back pain [Unknown]
  - Joint stiffness [Unknown]
  - Burning sensation [Unknown]
  - Contusion [Unknown]
  - Wound [Unknown]
  - Wound complication [Unknown]
  - Impaired healing [Unknown]
  - Angiopathy [Unknown]
  - Pain [Unknown]
